FAERS Safety Report 5040287-8 (Version None)
Quarter: 2006Q2

REPORT INFORMATION
  Report Type: 
  Country: None (occurrence: None)
  Receive Date: 20060630
  Receipt Date: 20060626
  Transmission Date: 20061013
  Serious: Yes (Other)
  Sender: FDA-Public Use
  Company Number: JP-SANOFI-SYNTHELABO-F01200601533

PATIENT
  Sex: Male
  Weight: 50 kg

DRUGS (3)
  1. CALCIUM LEVOFOLINATE [Suspect]
     Indication: COLON CANCER
     Dosage: 100 MG/BODY=69.0 MG/M2
     Route: 042
     Dates: start: 20051215, end: 20051215
  2. FLUOROURACIL [Suspect]
     Indication: COLON CANCER
     Dosage: 400 MG/BODY=275.9MG/M2 IN BOLUS THEN 550 MG/BODY=379.3 MG/M2 AS INFUSION.
     Route: 042
     Dates: start: 20051215, end: 20051215
  3. OXALIPLATIN [Suspect]
     Indication: COLON CANCER
     Dosage: 58.6 MG/M2
     Route: 042
     Dates: start: 20051215, end: 20051215

REACTIONS (1)
  - SHOCK [None]
